FAERS Safety Report 21512412 (Version 1)
Quarter: 2022Q4

REPORT INFORMATION
  Report Type: Spontaneous
  Country: US (occurrence: US)
  Receive Date: 20221027
  Receipt Date: 20221027
  Transmission Date: 20230113
  Serious: No
  Sender: FDA-Public Use
  Company Number: US-ORGANON-O2210USA001062

PATIENT
  Sex: Female

DRUGS (9)
  1. PREGNYL [Suspect]
     Active Substance: CHORIOGONADOTROPIN ALFA
     Indication: Infertility female
     Dosage: INJECTED 10000 UNITS IN THE MUSCLE ONCE AS DIRECTED
     Route: 030
     Dates: start: 20220716
  2. STERILE WATER [Suspect]
     Active Substance: WATER
     Dosage: UNK
     Route: 030
     Dates: start: 20220716
  3. CETROTIDE [Concomitant]
     Active Substance: CETRORELIX ACETATE
     Dosage: UNK
  4. ESCITALOPRAM [Concomitant]
     Active Substance: ESCITALOPRAM OXALATE
     Dosage: UNK
  5. ESTRADIOL [Concomitant]
     Active Substance: ESTRADIOL
     Dosage: STRENGTH: 20 MG/ML
  6. GONAL-F [Concomitant]
     Active Substance: FOLLITROPIN
     Dosage: UNK
  7. LEVOTHYROXINE [Concomitant]
     Active Substance: LEVOTHYROXINE
     Dosage: UNK
  8. MENOPUR [Concomitant]
     Active Substance: FOLLITROPIN\LUTEINIZING HORMONE
     Dosage: UNK
  9. PROGESTERONE [Concomitant]
     Active Substance: PROGESTERONE
     Dosage: STRENGTH: 50 MG/ML

REACTIONS (1)
  - Injection site reaction [Unknown]
